FAERS Safety Report 20129797 (Version 1)
Quarter: 2021Q4

REPORT INFORMATION
  Report Type: Spontaneous
  Country: US (occurrence: None)
  Receive Date: 20211129
  Receipt Date: 20211129
  Transmission Date: 20220303
  Serious: No
  Sender: FDA-Public Use
  Company Number: None

PATIENT
  Age: 60 Year
  Sex: Female
  Weight: 53.55 kg

DRUGS (5)
  1. SCEMBLIX [Suspect]
     Active Substance: ASCIMINIB HYDROCHLORIDE
     Indication: Chronic myeloid leukaemia
     Dosage: FREQUENCY : TWICE A DAY;?
     Route: 048
  2. ALLOPURINOL [Concomitant]
     Active Substance: ALLOPURINOL
     Dates: end: 20171128
  3. HYDROXYUREA [Concomitant]
     Active Substance: HYDROXYUREA
     Dates: end: 20171128
  4. Ambien CR 12.5mg [Concomitant]
     Dates: end: 20171128
  5. RESTASIS [Concomitant]
     Active Substance: CYCLOSPORINE
     Dates: end: 20171128

REACTIONS (1)
  - Amylase increased [None]

NARRATIVE: CASE EVENT DATE: 20211129
